FAERS Safety Report 10758471 (Version 4)
Quarter: 2015Q3

REPORT INFORMATION
  Report Type: Spontaneous
  Country: US (occurrence: US)
  Receive Date: 20150203
  Receipt Date: 20150709
  Transmission Date: 20151125
  Serious: Yes (Death, Hospitalization, Disabling, Other)
  Sender: FDA-Public Use
  Company Number: US-MERCK-1502USA001101

PATIENT
  Sex: Male
  Weight: 73.16 kg

DRUGS (4)
  1. JANUVIA [Suspect]
     Active Substance: SITAGLIPTIN PHOSPHATE
     Indication: TYPE 2 DIABETES MELLITUS
     Dosage: 100 MG, QD
     Route: 048
     Dates: start: 20070625, end: 20110601
  2. JANUMET [Suspect]
     Active Substance: METFORMIN HYDROCHLORIDE\SITAGLIPTIN PHOSPHATE
     Route: 048
  3. JANUMET XR [Suspect]
     Active Substance: METFORMIN HYDROCHLORIDE\SITAGLIPTIN PHOSPHATE
     Route: 048
  4. JUVISYNC [Suspect]
     Active Substance: SIMVASTATIN\SITAGLIPTIN PHOSPHATE
     Route: 048

REACTIONS (74)
  - Surgery [Unknown]
  - Metastases to abdominal wall [Unknown]
  - Hypoxia [Unknown]
  - Computerised tomogram abnormal [Unknown]
  - Psoriasis [Unknown]
  - Carpal tunnel decompression [Unknown]
  - Ascites [Unknown]
  - Soft tissue mass [Unknown]
  - Cardiomyopathy [Unknown]
  - Toxicity to various agents [Recovered/Resolved]
  - Pneumothorax spontaneous [Unknown]
  - Cholecystitis [Unknown]
  - Cholelithiasis [Unknown]
  - Proteinuria [Unknown]
  - Large intestinal polypectomy [Unknown]
  - Embolism arterial [Unknown]
  - Vomiting [Unknown]
  - Upper gastrointestinal haemorrhage [Unknown]
  - Chronic obstructive pulmonary disease [Not Recovered/Not Resolved]
  - Emphysema [Unknown]
  - Ejection fraction decreased [Unknown]
  - Hypoxia [Unknown]
  - Hypotension [Unknown]
  - Gastrostomy [Unknown]
  - Hepatic cirrhosis [Unknown]
  - Generalised oedema [Unknown]
  - Gallbladder perforation [Unknown]
  - Oesophageal ulcer haemorrhage [Unknown]
  - Nephrolithiasis [Unknown]
  - Pulmonary mass [Unknown]
  - Diverticulum [Unknown]
  - Hypertension [Unknown]
  - Peripheral artery aneurysm [Unknown]
  - Large intestine polyp [Unknown]
  - Gastrooesophageal reflux disease [Unknown]
  - Constipation [Recovering/Resolving]
  - Adenocarcinoma pancreas [Unknown]
  - Respiratory failure [Unknown]
  - Respiratory failure [Unknown]
  - Anaemia [Unknown]
  - Chronic obstructive pulmonary disease [Unknown]
  - Anuria [Unknown]
  - Sputum culture positive [Unknown]
  - Deep vein thrombosis [Unknown]
  - Aortic aneurysm [Unknown]
  - Peripheral arterial occlusive disease [Unknown]
  - Metastases to lymph nodes [Unknown]
  - Pneumonia [Unknown]
  - Spinal osteoarthritis [Unknown]
  - Asbestosis [Unknown]
  - Thrombosis [Unknown]
  - Carpal tunnel syndrome [Unknown]
  - Dyspnoea [Unknown]
  - Cholecystectomy [Unknown]
  - Respiratory failure [Unknown]
  - Pancytopenia [Unknown]
  - Pneumonia [Unknown]
  - Death [Fatal]
  - Gastroenterostomy [Unknown]
  - Chronic kidney disease [Not Recovered/Not Resolved]
  - Atrial fibrillation [Unknown]
  - Nausea [Unknown]
  - Radiotherapy [Unknown]
  - Tracheostomy [Unknown]
  - Anaemia [Unknown]
  - Metastases to lymph nodes [Unknown]
  - Aortic aneurysm repair [Unknown]
  - Aneurysmectomy [Unknown]
  - Pneumothorax [Unknown]
  - Atrial fibrillation [Unknown]
  - Mental status changes [Unknown]
  - Lung infiltration [Recovered/Resolved]
  - Bronchiectasis [Unknown]
  - Gastric polyps [Unknown]

NARRATIVE: CASE EVENT DATE: 2007
